FAERS Safety Report 13361457 (Version 2)
Quarter: 2017Q2

REPORT INFORMATION
  Report Type: Report from Study
  Country: BR (occurrence: BR)
  Receive Date: 20170323
  Receipt Date: 20170404
  Transmission Date: 20170830
  Serious: Yes (Other)
  Sender: FDA-Public Use
  Company Number: BR-ROCHE-1909203

PATIENT
  Sex: Female
  Weight: 65 kg

DRUGS (3)
  1. TAXOL [Concomitant]
     Active Substance: PACLITAXEL
     Indication: BREAST CANCER
     Route: 065
     Dates: end: 20151201
  2. AVASTIN [Suspect]
     Active Substance: BEVACIZUMAB
     Indication: BREAST CANCER
     Dosage: 25 CYCLE
     Route: 065
     Dates: start: 20150310, end: 20160820
  3. XELODA [Suspect]
     Active Substance: CAPECITABINE
     Indication: BREAST CANCER
     Route: 065
     Dates: end: 20160820

REACTIONS (2)
  - Disease progression [Unknown]
  - Drug ineffective [Unknown]
